FAERS Safety Report 5928959-1 (Version None)
Quarter: 2008Q4

REPORT INFORMATION
  Report Type: 
  Country: None (occurrence: None)
  Receive Date: 20081024
  Receipt Date: 20081016
  Transmission Date: 20090506
  Serious: Yes (Other)
  Sender: FDA-Public Use
  Company Number: AU-AVENTIS-200815611EU

PATIENT
  Age: 82 Year
  Sex: Male

DRUGS (12)
  1. LASIX [Suspect]
  2. CARDIZEM [Suspect]
  3. PLAVIX [Suspect]
     Route: 048
     Dates: start: 20070802
  4. IRBESARTAN [Suspect]
  5. ASPIRIN [Concomitant]
  6. SLOW-K [Concomitant]
  7. LIPITOR [Concomitant]
  8. RABEPRAZOLE SODIUM [Concomitant]
  9. SPIRIVA [Concomitant]
  10. PULMICORT [Concomitant]
  11. GLUCOSAMINE [Concomitant]
  12. VIT D [Concomitant]

REACTIONS (2)
  - DYSPNOEA [None]
  - PNEUMONIA [None]
